FAERS Safety Report 9722640 (Version 1)
Quarter: 2013Q4

REPORT INFORMATION
  Report Type: Spontaneous
  Country: US (occurrence: None)
  Receive Date: 20131127
  Receipt Date: 20131127
  Transmission Date: 20140711
  Serious: No
  Sender: FDA-Public Use
  Company Number: None

PATIENT
  Age: 83 Year
  Sex: Male

DRUGS (1)
  1. SILDENAFIL [Suspect]
     Dosage: SILDENAFIL 20 MG THREE TIMES A DAY ORAL
     Route: 048
     Dates: start: 20130807, end: 20131118

REACTIONS (2)
  - Aggression [None]
  - Local swelling [None]
